FAERS Safety Report 6644554-3 (Version None)
Quarter: 2010Q1

REPORT INFORMATION
  Report Type: 
  Country: None (occurrence: None)
  Receive Date: 20100319
  Receipt Date: 20100319
  Transmission Date: 20100710
  Serious: Yes (Other)
  Sender: FDA-Public Use
  Company Number: None

PATIENT
  Age: 47 Year
  Sex: Male
  Weight: 70.5 kg

DRUGS (2)
  1. CETIRIZINE HYDROCHLORIDE [Suspect]
     Indication: PRURITUS
     Dosage: 1-10MG PILL DAILY ORAL
     Route: 048
     Dates: start: 20091201
  2. CETIRIZINE HYDROCHLORIDE [Suspect]
     Indication: URTICARIA
     Dosage: 1-10MG PILL DAILY ORAL
     Route: 048
     Dates: start: 20091201

REACTIONS (3)
  - DRUG WITHDRAWAL SYNDROME [None]
  - PRURITUS [None]
  - URTICARIA [None]
